FAERS Safety Report 11188847 (Version 1)
Quarter: 2015Q2

REPORT INFORMATION
  Report Type: Spontaneous
  Country: NL (occurrence: NL)
  Receive Date: 20150615
  Receipt Date: 20150615
  Transmission Date: 20150821
  Serious: Yes (Life-Threatening)
  Sender: FDA-Public Use
  Company Number: NL-JNJFOC-20150608858

PATIENT
  Age: 66 Year
  Sex: Female
  Weight: 52 kg

DRUGS (3)
  1. HALOPERIDOL. [Suspect]
     Active Substance: HALOPERIDOL
     Indication: CONFUSIONAL STATE
     Route: 048
     Dates: start: 20141103
  2. LITHIUM CARBONAAT [Interacting]
     Active Substance: LITHIUM CARBONATE
     Indication: SOCIAL PROBLEM
     Route: 048
     Dates: start: 198205
  3. ENALAPRILMALEAAT [Concomitant]
     Route: 048
     Dates: start: 198905

REACTIONS (3)
  - Depressed level of consciousness [Recovered/Resolved with Sequelae]
  - Muscle rigidity [Recovered/Resolved]
  - Drug interaction [Recovered/Resolved]

NARRATIVE: CASE EVENT DATE: 20141104
